FAERS Safety Report 7002225-8 (Version None)
Quarter: 2010Q3

REPORT INFORMATION
  Report Type: 
  Country: None (occurrence: None)
  Receive Date: 20100917
  Receipt Date: 20100917
  Transmission Date: 20110219
  Serious: No
  Sender: FDA-Public Use
  Company Number: None

PATIENT
  Sex: Female
  Weight: 74.8435 kg

DRUGS (2)
  1. LEVAQUIN [Suspect]
     Indication: BRONCHITIS
     Dosage: 750 MG 1X
     Dates: start: 20100805
  2. LEVAQUIN [Suspect]
     Indication: BRONCHITIS
     Dosage: 750 MG 1X
     Dates: start: 20100806

REACTIONS (3)
  - JOINT STIFFNESS [None]
  - RENAL PAIN [None]
  - URINE OUTPUT DECREASED [None]
